FAERS Safety Report 11346463 (Version 1)
Quarter: 2015Q3

REPORT INFORMATION
  Report Type: Spontaneous
  Country: US (occurrence: US)
  Receive Date: 20150803
  Receipt Date: 20150803
  Transmission Date: 20151125
  Serious: No
  Sender: FDA-Public Use
  Company Number: US-ELI_LILLY_AND_COMPANY-US201010003044

PATIENT
  Age: 76 Year
  Sex: Male

DRUGS (1)
  1. ZYPREXA [Suspect]
     Active Substance: OLANZAPINE
     Indication: SCHIZOPHRENIA
     Dosage: 10 MG, UNK
     Dates: start: 1997, end: 2003

REACTIONS (5)
  - Diabetes mellitus [Unknown]
  - Malaise [Unknown]
  - Cataract [Unknown]
  - Orthostatic hypotension [Unknown]
  - Tardive dyskinesia [Unknown]
